FAERS Safety Report 15116170 (Version 1)
Quarter: 2018Q3

REPORT INFORMATION
  Report Type: Spontaneous
  Country: GB (occurrence: GB)
  Receive Date: 20180706
  Receipt Date: 20180706
  Transmission Date: 20181010
  Serious: Yes (Other)
  Sender: FDA-Public Use
  Company Number: GB-WEST-WARD PHARMACEUTICALS CORP.-GB-H14001-18-05463

PATIENT
  Age: 48 Year
  Sex: Female
  Weight: 60 kg

DRUGS (2)
  1. CO?AMOXICLAV [Suspect]
     Active Substance: AMOXICILLIN\CLAVULANATE POTASSIUM
     Indication: DIVERTICULITIS
     Dosage: 3 X TABLETS PER DAY AT HOME
     Route: 048
     Dates: end: 20180604
  2. CO?AMOXICLAV [Suspect]
     Active Substance: AMOXICILLIN\CLAVULANATE POTASSIUM
     Indication: DIVERTICULITIS
     Dosage: 3 X LIQUID DRIP ? HOSPITAL
     Route: 041
     Dates: end: 20180527

REACTIONS (6)
  - Headache [Recovered/Resolved]
  - Ear pain [Recovered/Resolved]
  - Nausea [Recovered/Resolved]
  - Thirst [Recovered/Resolved]
  - Vomiting [Unknown]
  - Dysgeusia [Unknown]

NARRATIVE: CASE EVENT DATE: 20180527
